FAERS Safety Report 4466292-8 (Version None)
Quarter: 2004Q4

REPORT INFORMATION
  Report Type: 
  Country: None (occurrence: None)
  Receive Date: 20041005
  Receipt Date: 20040923
  Transmission Date: 20050328
  Serious: Yes (Other)
  Sender: FDA-Public Use
  Company Number: PHEH2004US10319

PATIENT
  Age: 56 Year
  Sex: Male

DRUGS (8)
  1. PAMIDRONATE DISODIUM [Suspect]
     Dosage: 180 MG, QMO
     Dates: start: 19970901, end: 20000301
  2. PAMIDRONATE DISODIUM [Suspect]
     Dosage: 90 MG, UNK
     Dates: start: 20000401, end: 20020901
  3. THALIDOMIDE [Suspect]
     Dosage: 100 MG, UNK
     Dates: start: 20010401
  4. INTERFERON [Concomitant]
     Dosage: 3 MU
  5. DECADRON [Concomitant]
     Dates: start: 20011201
  6. MELPHALAN [Concomitant]
     Dates: start: 19980101
  7. VINCRISTINE + ADRIAMYCIN + DEXAMETHASONE [Concomitant]
  8. VACCINE TRIAL [Concomitant]

REACTIONS (4)
  - DEEP VEIN THROMBOSIS [None]
  - GAMMOPATHY [None]
  - MALIGNANT NEOPLASM PROGRESSION [None]
  - STEM CELL TRANSPLANT [None]
